FAERS Safety Report 8677015 (Version 3)
Quarter: 2012Q4

REPORT INFORMATION
  Report Type: 
  Country: US (occurrence: US)
  Receive Date: 20120723
  Receipt Date: 20120924
  Transmission Date: 20130627
  Serious: Yes (Other)
  Sender: FDA-Public Use
  Company Number: US-JNJFOC-20120706938

PATIENT
  Age: 65 None
  Sex: Male
  Weight: 111.13 kg

DRUGS (29)
  1. STELARA [Suspect]
     Indication: PSORIASIS
     Route: 058
     Dates: start: 20120710, end: 20120710
  2. STELARA [Suspect]
     Indication: PSORIASIS
     Route: 058
     Dates: start: 20120413, end: 20120413
  3. STELARA [Suspect]
     Indication: PSORIASIS
     Route: 058
     Dates: start: 20120103, end: 20120103
  4. STELARA [Suspect]
     Indication: PSORIASIS
     Dosage: received 9 doses
     Route: 058
     Dates: start: 20110927, end: 20110927
  5. STELARA [Suspect]
     Indication: PSORIASIS
     Route: 058
     Dates: start: 20100510, end: 20100510
  6. INSULIN HUMALOG [Concomitant]
     Dosage: 16 units in morning
     Route: 065
  7. GLUCOPHAGE [Concomitant]
     Dosage: 2 in morning and 2 at night
     Route: 065
  8. JANUVIA [Concomitant]
     Dosage: 1 in morning
     Route: 065
  9. DEXILANT [Concomitant]
     Dosage: 1 in morning
     Route: 065
  10. AMARYL [Concomitant]
     Dosage: 1/2 in morning
     Route: 065
  11. AVALIDE [Concomitant]
     Dosage: 300/12.5 mg
     Route: 065
  12. CARDIZEM CD [Concomitant]
     Route: 065
  13. CARTIA XT [Concomitant]
     Dosage: alternate daily with Cardizem CD
     Route: 065
  14. LIPITOR [Concomitant]
     Route: 065
  15. ASPIRIN [Concomitant]
     Route: 065
  16. FLONASE [Concomitant]
     Dosage: 1 puff
     Route: 065
  17. BUPROPION XL [Concomitant]
     Dosage: 1 in morning
     Route: 065
  18. ALL OTHER THERAPEUTIC PRODUCTS [Concomitant]
     Indication: PSORIASIS
     Dosage: evening as needed
     Route: 065
  19. CLOBETASOL [Concomitant]
     Dosage: applied to scalp as needed
     Route: 065
  20. CICLOPIROX [Concomitant]
     Dosage: as needed
     Route: 065
  21. ERYTHROMYCIN [Concomitant]
     Dosage: as needed
     Route: 061
  22. CIALIS [Concomitant]
     Route: 065
  23. ULTRAM [Concomitant]
     Dosage: 1 to 2 tablets
     Route: 065
  24. BENADRYL [Concomitant]
     Dosage: 1 to 2 at night
     Route: 065
  25. CENTRUM SILVER [Concomitant]
     Route: 065
  26. SALMON OIL [Concomitant]
     Route: 065
  27. CALCIUM [Concomitant]
     Route: 065
  28. MAGNESIUM [Concomitant]
     Route: 065
  29. VITAMIN D [Concomitant]
     Route: 065

REACTIONS (5)
  - Squamous cell carcinoma [Recovering/Resolving]
  - Papule [Unknown]
  - Pain in extremity [Not Recovered/Not Resolved]
  - Arthralgia [Recovered/Resolved]
  - Hypoaesthesia [Unknown]
